FAERS Safety Report 25937072 (Version 1)
Quarter: 2025Q4

REPORT INFORMATION
  Report Type: Spontaneous
  Country: US (occurrence: US)
  Receive Date: 20251017
  Receipt Date: 20251017
  Transmission Date: 20260117
  Serious: No
  Sender: AMPHASTAR
  Company Number: US-Amphastar Pharmaceuticals, Inc.-2186786

PATIENT
  Age: 72 Year
  Sex: Female

DRUGS (2)
  1. GLUCAGON [Suspect]
     Active Substance: GLUCAGON
     Indication: Magnetic resonance imaging
     Dates: start: 20250701, end: 20250701
  2. Thyroid pill (unspecified) [Concomitant]

REACTIONS (2)
  - Abdominal pain upper [Unknown]
  - Gastrointestinal pain [Unknown]

NARRATIVE: CASE EVENT DATE: 20250701
